FAERS Safety Report 5963003-1 (Version None)
Quarter: 2008Q4

REPORT INFORMATION
  Report Type: 
  Country: None (occurrence: None)
  Receive Date: 20081124
  Receipt Date: 20081118
  Transmission Date: 20090506
  Serious: Yes (Hospitalization)
  Sender: FDA-Public Use
  Company Number: US-BIOGENIDEC-2008BI026875

PATIENT
  Sex: Male
  Weight: 81 kg

DRUGS (1)
  1. TYSABRI [Suspect]
     Indication: MULTIPLE SCLEROSIS
     Route: 042
     Dates: start: 20070108

REACTIONS (6)
  - CLOSTRIDIAL INFECTION [None]
  - COORDINATION ABNORMAL [None]
  - HYPERTENSION [None]
  - MOBILITY DECREASED [None]
  - TRANSIENT ISCHAEMIC ATTACK [None]
  - URINARY TRACT INFECTION [None]
